FAERS Safety Report 9304401 (Version 2)
Quarter: 2013Q2

REPORT INFORMATION
  Report Type: Other
  Country: DE (occurrence: DE)
  Receive Date: 20130522
  Receipt Date: 20130605
  Transmission Date: 20140414
  Serious: Yes (Hospitalization, Other)
  Sender: FDA-Public Use
  Company Number: DE-WATSON-2013-08790

PATIENT
  Sex: Male
  Weight: 4 kg

DRUGS (4)
  1. CITALOPRAM HYDROBROMIDE (UNKNOWN) [Suspect]
     Indication: DEPRESSION
     Dosage: 30 [MG/D ]/ DOSAGE INCREASED FROM 20 MG/D TO 30 MG/D;BREAK BETWEEN WEEK 14 AND 18^ ]
     Route: 064
  2. ATOSIL /00033002/ [Suspect]
     Indication: RESTLESSNESS
     Dosage: UNK
     Route: 064
     Dates: start: 20120815, end: 20121015
  3. ORTHOMOL [Concomitant]
     Indication: PROPHYLAXIS OF NEURAL TUBE DEFECT
     Dosage: 0.5 [MG/D ]
     Route: 064
     Dates: start: 20120404, end: 20130113
  4. TAVOR                              /00273201/ [Concomitant]
     Indication: RESTLESSNESS
     Dosage: 5 [MG/WK ]
     Route: 064
     Dates: start: 20121015, end: 20121115

REACTIONS (6)
  - Hypertonia neonatal [Recovered/Resolved]
  - Agitation neonatal [Recovered/Resolved]
  - Neonatal hyponatraemia [Recovered/Resolved]
  - Temperature regulation disorder [Recovered/Resolved]
  - Neonatal respiratory distress syndrome [Recovered/Resolved]
  - Foetal exposure during pregnancy [Unknown]
